FAERS Safety Report 5063972-0 (Version None)
Quarter: 2006Q3

REPORT INFORMATION
  Report Type: 
  Country: None (occurrence: None)
  Receive Date: 20060703
  Receipt Date: 20050927
  Transmission Date: 20061208
  Serious: Yes (Life-Threatening)
  Sender: FDA-Public Use
  Company Number: 2005S1009620

PATIENT
  Age: 25 Year
  Sex: Male
  Weight: 116.1208 kg

DRUGS (13)
  1. CLOZAPINE [Suspect]
     Indication: PSYCHOTIC DISORDER
     Dosage: SEE IMAGE
     Route: 048
     Dates: start: 20040301, end: 20050907
  2. CLOZAPINE [Suspect]
     Indication: SCHIZOPHRENIA
     Dosage: SEE IMAGE
     Route: 048
     Dates: start: 20040301, end: 20050907
  3. CLOZAPINE [Suspect]
     Indication: PSYCHOTIC DISORDER
     Dosage: SEE IMAGE
     Route: 048
     Dates: start: 20040301, end: 20050907
  4. CLOZAPINE [Suspect]
     Indication: SCHIZOPHRENIA
     Dosage: SEE IMAGE
     Route: 048
     Dates: start: 20040301, end: 20050907
  5. CLONIDINE [Concomitant]
  6. VALPROATE SODIUM [Concomitant]
  7. HYDROCHLOROTHIAZIDE [Concomitant]
  8. VITAMINS NOS [Concomitant]
  9. NALTREXONE [Concomitant]
  10. NAPROXEN [Concomitant]
  11. AMLODIPINE BESYLATE [Concomitant]
  12. RANITIDINE HYDROCHLORIDE [Concomitant]
  13. SETRALINE HCL [Concomitant]

REACTIONS (2)
  - AGRANULOCYTOSIS [None]
  - GRANULOCYTOPENIA [None]
